FAERS Safety Report 23147459 (Version 2)
Quarter: 2024Q1

REPORT INFORMATION
  Report Type: Report from Study
  Country: US (occurrence: US)
  Receive Date: 20231106
  Receipt Date: 20240119
  Transmission Date: 20240410
  Serious: No
  Sender: FDA-Public Use
  Company Number: US-002147023-NVSC2023US235119

PATIENT
  Sex: Female

DRUGS (1)
  1. KESIMPTA [Suspect]
     Active Substance: OFATUMUMAB
     Indication: Product used for unknown indication
     Dosage: UNK
     Route: 065

REACTIONS (6)
  - Alopecia [Unknown]
  - Condition aggravated [Unknown]
  - Stress [Unknown]
  - Gingival bleeding [Unknown]
  - Skin disorder [Unknown]
  - Psoriasis [Unknown]
